FAERS Safety Report 8130109-0 (Version None)
Quarter: 2012Q1

REPORT INFORMATION
  Report Type: 
  Country: None (occurrence: None)
  Receive Date: 20120210
  Receipt Date: 20120201
  Transmission Date: 20120608
  Serious: Yes (Other)
  Sender: FDA-Public Use
  Company Number: US-ALLERGAN-1201612US

PATIENT
  Age: 75 Year
  Sex: Female

DRUGS (2)
  1. VANCOMYCIN [Concomitant]
     Indication: BACTERIAL DISEASE CARRIER
     Dosage: 50 MG, UNK
  2. PREDNISOLONE ACETATE [Suspect]
     Indication: INFLAMMATION
     Route: 047

REACTIONS (2)
  - CORNEAL THINNING [None]
  - CORNEAL ABSCESS [None]
